FAERS Safety Report 5078701-4 (Version None)
Quarter: 2006Q3

REPORT INFORMATION
  Report Type: 
  Country: None (occurrence: None)
  Receive Date: 20060808
  Receipt Date: 20060724
  Transmission Date: 20061208
  Serious: Yes (Hospitalization, Other)
  Sender: FDA-Public Use
  Company Number: 2006SP002795

PATIENT
  Age: 66 Year
  Sex: Male

DRUGS (3)
  1. XOPENEX [Suspect]
     Indication: ASTHMA
     Dosage: 1.25 MG; TID; INHALATION
     Route: 055
     Dates: start: 20060501, end: 20060101
  2. ADVAIR DISKUS 100/50 [Suspect]
     Dosage: INHALATION
     Route: 055
     Dates: start: 20060501, end: 20060101
  3. SINGULAIR [Concomitant]

REACTIONS (5)
  - ATRIAL FLUTTER [None]
  - DIZZINESS [None]
  - DYSPNOEA [None]
  - HEART RATE INCREASED [None]
  - THROMBOSIS [None]
